FAERS Safety Report 17022864 (Version 1)
Quarter: 2019Q4

REPORT INFORMATION
  Report Type: Spontaneous
  Country: FI (occurrence: FI)
  Receive Date: 20191112
  Receipt Date: 20191112
  Transmission Date: 20200122
  Serious: Yes (Hospitalization)
  Sender: FDA-Public Use
  Company Number: FI-DSJP-DSE-2019-140489

PATIENT

DRUGS (1)
  1. LIXIANA [Suspect]
     Active Substance: EDOXABAN TOSYLATE
     Indication: ATRIAL FIBRILLATION
     Dosage: 30 MG, QD
     Route: 048
     Dates: start: 2018

REACTIONS (5)
  - Musculoskeletal discomfort [Unknown]
  - Abdominal distension [Unknown]
  - Abdominal discomfort [Unknown]
  - Gastrointestinal disorder [Unknown]
  - Feeling abnormal [Unknown]
